FAERS Safety Report 16614749 (Version 1)
Quarter: 2019Q3

REPORT INFORMATION
  Report Type: Spontaneous
  Country: US (occurrence: US)
  Receive Date: 20190723
  Receipt Date: 20190723
  Transmission Date: 20191004
  Serious: No
  Sender: FDA-Public Use
  Company Number: US-PFIZER INC-2019214667

PATIENT
  Age: 58 Year
  Sex: Male

DRUGS (2)
  1. DILANTIN [Suspect]
     Active Substance: PHENYTOIN
     Dosage: 60 MG, 1X/DAY (2 P.O. AM)
     Route: 048
  2. DILANTIN [Suspect]
     Active Substance: PHENYTOIN
     Indication: EPILEPSY
     Dosage: 300 MG, 2X/DAY; [3 P.O. BID]
     Route: 048

REACTIONS (2)
  - Prescribed overdose [Unknown]
  - Anticonvulsant drug level below therapeutic [Unknown]
